FAERS Safety Report 4780957-X (Version None)
Quarter: 2005Q3

REPORT INFORMATION
  Report Type: 
  Country: None (occurrence: None)
  Receive Date: 20050926
  Receipt Date: 20050926
  Transmission Date: 20060218
  Serious: Yes (Other)
  Sender: FDA-Public Use
  Company Number: None

PATIENT

DRUGS (3)
  1. ESTRO - 12                 LEDGERE PHARM [Suspect]
     Indication: FATIGUE
     Dosage: 1 CC EVERY MONTH IM
     Route: 030
     Dates: start: 19970110, end: 20050808
  2. ESTRO - 12                 LEDGERE PHARM [Suspect]
     Indication: OESTROGEN DEFICIENCY
     Dosage: 1 CC EVERY MONTH IM
     Route: 030
     Dates: start: 19970110, end: 20050808
  3. . [Concomitant]

REACTIONS (1)
  - POOR QUALITY DRUG ADMINISTERED [None]
